FAERS Safety Report 17423904 (Version 5)
Quarter: 2020Q2

REPORT INFORMATION
  Report Type: Spontaneous
  Country: US (occurrence: US)
  Receive Date: 20200217
  Receipt Date: 20200602
  Transmission Date: 20200713
  Serious: Yes (Hospitalization, Other)
  Sender: FDA-Public Use
  Company Number: US-GILEAD-2020-0450652

PATIENT
  Age: 52 Year
  Sex: Male

DRUGS (62)
  1. DESCOVY [Concomitant]
     Active Substance: EMTRICITABINE\TENOFOVIR ALAFENAMIDE FUMARATE
  2. TAMSULOSIN [Concomitant]
     Active Substance: TAMSULOSIN
  3. SELZENTRY [Concomitant]
     Active Substance: MARAVIROC
  4. NEXIUM I.V. [Concomitant]
     Active Substance: ESOMEPRAZOLE SODIUM
  5. NORVIR [Concomitant]
     Active Substance: RITONAVIR
  6. CIPROFLOXACIN. [Concomitant]
     Active Substance: CIPROFLOXACIN
  7. AMOXICILLIN AND CLAVULANATE POTASSIUM [Concomitant]
     Active Substance: AMOXICILLIN\CLAVULANATE POTASSIUM
  8. HARVONI [Concomitant]
     Active Substance: LEDIPASVIR\SOFOSBUVIR
  9. LIDOCAINE 5% EXTRA [Concomitant]
  10. PREZCOBIX [Concomitant]
     Active Substance: COBICISTAT\DARUNAVIR ETHANOLATE
  11. HYDROCODONE/ACETAMINOPHEN [Concomitant]
     Active Substance: ACETAMINOPHEN\HYDROCODONE
  12. MIRTAZAPINE. [Concomitant]
     Active Substance: MIRTAZAPINE
  13. TRINTELLIX [Concomitant]
     Active Substance: VORTIOXETINE HYDROBROMIDE
  14. ANDROGEL [Concomitant]
     Active Substance: TESTOSTERONE
  15. OFLOXACIN. [Concomitant]
     Active Substance: OFLOXACIN
  16. FLUTICASONE. [Concomitant]
     Active Substance: FLUTICASONE
  17. SILDENAFIL. [Concomitant]
     Active Substance: SILDENAFIL
  18. IBUPROFEN. [Concomitant]
     Active Substance: IBUPROFEN
  19. DESVENLAFAXINE. [Concomitant]
     Active Substance: DESVENLAFAXINE
  20. ABILIFY [Concomitant]
     Active Substance: ARIPIPRAZOLE
  21. VALACYCLOVIR [Concomitant]
     Active Substance: VALACYCLOVIR HYDROCHLORIDE
  22. ISENTRESS [Concomitant]
     Active Substance: RALTEGRAVIR POTASSIUM
  23. CYMBALTA [Concomitant]
     Active Substance: DULOXETINE HYDROCHLORIDE
  24. CEPHALEXIN [CEFALEXIN] [Concomitant]
     Active Substance: CEPHALEXIN
  25. TERBINAFINE. [Concomitant]
     Active Substance: TERBINAFINE
  26. FLUVIRIN [INFLUENZA VACCINE INACT SAG 3V] [Concomitant]
  27. VIREAD [Suspect]
     Active Substance: TENOFOVIR DISOPROXIL FUMARATE
     Indication: HIV INFECTION
     Route: 048
  28. PILOCARPINE. [Concomitant]
     Active Substance: PILOCARPINE
  29. CLONAZEPAM. [Concomitant]
     Active Substance: CLONAZEPAM
  30. PREZISTA [Concomitant]
     Active Substance: DARUNAVIR ETHANOLATE
  31. ATORVASTATIN [Concomitant]
     Active Substance: ATORVASTATIN
  32. GABAPENTIN. [Concomitant]
     Active Substance: GABAPENTIN
  33. DRONABINOL. [Concomitant]
     Active Substance: DRONABINOL
  34. RANITIDINE. [Concomitant]
     Active Substance: RANITIDINE
  35. ACTONEL [Concomitant]
     Active Substance: RISEDRONATE SODIUM
  36. BUSPIRONE [Concomitant]
     Active Substance: BUSPIRONE HYDROCHLORIDE
  37. TIVICAY [Concomitant]
     Active Substance: DOLUTEGRAVIR SODIUM
  38. REFRESH [CARBOMER] [Concomitant]
     Active Substance: CARBOMER
  39. QUETIAPINE FUMARATE. [Concomitant]
     Active Substance: QUETIAPINE FUMARATE
  40. CLEARLAX [Concomitant]
     Active Substance: POLYETHYLENE GLYCOL 3350
  41. SULFAMETHOXAZOLE AND TRIMETHOPRIM [Concomitant]
     Active Substance: SULFAMETHOXAZOLE\TRIMETHOPRIM
  42. AZITHROMYCIN ANHYDROUS. [Concomitant]
     Active Substance: AZITHROMYCIN ANHYDROUS
  43. AMOXICILLIN. [Concomitant]
     Active Substance: AMOXICILLIN
  44. TRUVADA [Suspect]
     Active Substance: EMTRICITABINE\TENOFOVIR DISOPROXIL FUMARATE
     Indication: HIV INFECTION
     Dosage: UNK
     Route: 048
     Dates: start: 200802, end: 201704
  45. DOXAZOSIN MESYLATE. [Concomitant]
     Active Substance: DOXAZOSIN MESYLATE
  46. BIKTARVY [Concomitant]
     Active Substance: BICTEGRAVIR SODIUM\EMTRICITABINE\TENOFOVIR ALAFENAMIDE FUMARATE
     Dosage: 1 DOSAGE FORM, QD
  47. ZOLPIDEM [Concomitant]
     Active Substance: ZOLPIDEM TARTRATE
  48. KETOCONAZOLE. [Concomitant]
     Active Substance: KETOCONAZOLE
  49. PANTOPRAZOLE [Concomitant]
     Active Substance: PANTOPRAZOLE
  50. VENLAFAXINE [Concomitant]
     Active Substance: VENLAFAXINE HYDROCHLORIDE
  51. MUPIROCIN. [Concomitant]
     Active Substance: MUPIROCIN
  52. SEROQUEL [Concomitant]
     Active Substance: QUETIAPINE FUMARATE
  53. ALENDRONATE [Concomitant]
     Active Substance: ALENDRONATE SODIUM
  54. IBANDRONATE [Concomitant]
     Active Substance: IBANDRONATE SODIUM
  55. FLUNISOLIDE. [Concomitant]
     Active Substance: FLUNISOLIDE
  56. AZELASTINE. [Concomitant]
     Active Substance: AZELASTINE HYDROCHLORIDE
  57. FINASTERIDE. [Concomitant]
     Active Substance: FINASTERIDE
  58. BUSPIRONE HCL [Concomitant]
     Active Substance: BUSPIRONE HYDROCHLORIDE
  59. RESTASIS [Concomitant]
     Active Substance: CYCLOSPORINE
  60. TAMIFLU [Concomitant]
     Active Substance: OSELTAMIVIR PHOSPHATE
  61. BACLOFEN. [Concomitant]
     Active Substance: BACLOFEN
  62. PRISTIQ EXTENDED-RELEASE [Concomitant]
     Active Substance: DESVENLAFAXINE SUCCINATE

REACTIONS (20)
  - Bacterial prostatitis [Recovered/Resolved]
  - Emotional distress [Unknown]
  - Renal failure [Unknown]
  - Drug ineffective [Recovered/Resolved]
  - Economic problem [Unknown]
  - Anxiety [Unknown]
  - Anhedonia [Unknown]
  - Pain [Unknown]
  - Fracture [Unknown]
  - Genotype drug resistance test positive [Unknown]
  - Renal injury [Not Recovered/Not Resolved]
  - HIV viraemia [Recovered/Resolved]
  - Bone density decreased [Unknown]
  - Blood HIV RNA increased [Unknown]
  - Osteoporosis [Not Recovered/Not Resolved]
  - Humerus fracture [Recovered/Resolved]
  - Sepsis [Recovered/Resolved]
  - Osteopenia [Not Recovered/Not Resolved]
  - Pyelonephritis [Unknown]
  - Product dose omission [Unknown]

NARRATIVE: CASE EVENT DATE: 20080603
